FAERS Safety Report 7397691-2 (Version None)
Quarter: 2011Q2

REPORT INFORMATION
  Report Type: 
  Country: None (occurrence: None)
  Receive Date: 20110406
  Receipt Date: 20110331
  Transmission Date: 20111010
  Serious: Yes (Other)
  Sender: FDA-Public Use
  Company Number: US-PFIZER INC-2011072104

PATIENT
  Sex: Male

DRUGS (6)
  1. RISPERDAL [Suspect]
     Dosage: UNK
  2. DEPAKOTE [Concomitant]
     Dosage: UNK
  3. VIVANT [Concomitant]
     Dosage: UNK
  4. GEODON [Suspect]
     Dosage: 80 MG, 1 TABLET IN MORNING
     Dates: start: 20101229
  5. DDAVP [Concomitant]
     Indication: ENURESIS
     Dosage: UNK
  6. KLONOPIN [Concomitant]
     Dosage: UNK

REACTIONS (1)
  - BLOOD PROLACTIN INCREASED [None]
